FAERS Safety Report 7302596-9 (Version None)
Quarter: 2011Q1

REPORT INFORMATION
  Report Type: 
  Country: None (occurrence: None)
  Receive Date: 20110218
  Receipt Date: 20110217
  Transmission Date: 20110831
  Serious: Yes (Death, Other)
  Sender: FDA-Public Use
  Company Number: ES-PFIZER INC-2011028572

PATIENT
  Age: 50 Year
  Sex: Female

DRUGS (6)
  1. PROPOFOL [Suspect]
     Indication: ANAESTHESIA
     Dosage: 150 MG, UNK
     Route: 042
     Dates: start: 20101029, end: 20101029
  2. RISPERDAL [Suspect]
     Indication: SCHIZOPHRENIA
     Dosage: UNK MG, 2X/DAY
     Route: 048
     Dates: start: 20000101, end: 20101029
  3. FENTANYL CITRATE [Suspect]
     Indication: ANAESTHESIA
     Dosage: 100 MG, UNK
     Route: 042
     Dates: start: 20101029, end: 20101029
  4. AKINETON [Suspect]
     Indication: SCHIZOPHRENIA
     Dosage: 4 MG, 1X/DAY
     Route: 048
     Dates: start: 20000101, end: 20101029
  5. ATROPINE [Suspect]
     Indication: ANAESTHESIA
     Dosage: 1 MG, UNK
     Route: 042
     Dates: start: 20101029, end: 20101029
  6. BESITRAN [Suspect]
     Indication: SCHIZOPHRENIA
     Dosage: 50 MG, 1X/DAY
     Route: 048
     Dates: start: 20070101, end: 20101029

REACTIONS (7)
  - LONG QT SYNDROME [None]
  - RESPIRATORY ARREST [None]
  - MULTIPLE FRACTURES [None]
  - HAEMODYNAMIC INSTABILITY [None]
  - CARDIAC ARREST [None]
  - VENTRICULAR FIBRILLATION [None]
  - FALL [None]
